FAERS Safety Report 7999212-X (Version None)
Quarter: 2011Q4

REPORT INFORMATION
  Report Type: 
  Country: None (occurrence: None)
  Receive Date: 20111221
  Receipt Date: 20111216
  Transmission Date: 20120403
  Serious: Yes (Death, Hospitalization, Other)
  Sender: FDA-Public Use
  Company Number: US-CELGENEUS-163-21880-11100113

PATIENT
  Sex: Male
  Weight: 83.99 kg

DRUGS (36)
  1. CO Q-10 [Concomitant]
     Dosage: 300 MILLIGRAM
     Route: 048
  2. ALL OTHER THERAPEUTIC PRODUCTS [Concomitant]
     Dosage: 10 MILLILITER
     Route: 065
  3. MEGESTROL ACETATE [Concomitant]
     Dosage: 40 MILLIGRAM
     Route: 048
  4. BROAD SPECTRUM ANTIBIOTICS [Concomitant]
     Route: 065
  5. PROSCAR [Concomitant]
     Dosage: 5 MILLIGRAM
     Route: 065
  6. PHENERGAN [Concomitant]
     Dosage: 12.5 MILLIGRAM
     Route: 065
  7. LEVOFLOXACIN [Concomitant]
     Dosage: 250 MILLIGRAM
     Route: 048
  8. CHOLECALCIFEROL [Concomitant]
     Dosage: 5000 IU (INTERNATIONAL UNIT)
     Route: 048
  9. FISH OIL [Concomitant]
     Route: 065
  10. KEFLEX [Concomitant]
     Dosage: 500 MILLIGRAM
     Route: 048
  11. SIMVASTATIN [Concomitant]
     Dosage: 10 MILLIGRAM
     Route: 048
  12. TRIAMTERENE AND HYDROCHLOROTHIAZIDE [Concomitant]
     Dosage: 37.5-25 MG
     Route: 048
  13. ALLOPURINOL [Concomitant]
     Dosage: 100 MILLIGRAM
     Route: 048
  14. VITAMIN D [Concomitant]
     Route: 065
  15. NEXIUM [Concomitant]
     Dosage: 40 MILLIGRAM
     Route: 065
  16. REGLAN [Concomitant]
     Dosage: 10 MILLIGRAM
     Route: 048
  17. NEURONTIN [Concomitant]
     Dosage: 300 MILLIGRAM
     Route: 065
  18. AMITRIPTYLINE HCL [Concomitant]
     Dosage: 25 MILLIGRAM
     Route: 048
  19. CALCIUM CARBONATE [Concomitant]
     Dosage: 600 MILLIGRAM
     Route: 048
  20. FINASTERIDE [Concomitant]
     Dosage: 5 MILLIGRAM
     Route: 048
  21. VITAMIN C [Concomitant]
     Route: 048
  22. BLOOD TRANSFUSION [Concomitant]
     Route: 041
  23. VITAMIN D [Concomitant]
     Route: 065
  24. ZOCOR [Concomitant]
     Dosage: 10 MILLIGRAM
     Route: 065
  25. CALCITONIN SALMON [Concomitant]
     Dosage: 200/DOSE
     Route: 045
  26. FLOMAX [Concomitant]
     Dosage: .4 MILLIGRAM
     Route: 048
  27. LOVAZA [Concomitant]
     Dosage: 1000 MILLIGRAM
     Route: 048
  28. PROMETHAZINE HCL [Concomitant]
     Indication: NAUSEA
     Dosage: 25 MILLIGRAM
     Route: 048
  29. PREVACID [Concomitant]
     Route: 065
  30. ASPIRIN [Concomitant]
     Dosage: 81 MILLIGRAM
     Route: 048
  31. DEXAMETHASONE [Concomitant]
     Dosage: 4 TABLET
     Route: 048
  32. MAGNESIUM CHLORIDE [Concomitant]
     Route: 048
  33. VELCADE [Concomitant]
     Route: 065
  34. REVLIMID [Suspect]
     Indication: MULTIPLE MYELOMA
     Dosage: 25 MILLIGRAM
     Route: 048
     Dates: start: 20110909
  35. ESOMEPRAZOLE MAGNESIUM [Concomitant]
     Dosage: 40 MILLIGRAM
     Route: 048
  36. SUCRALFATE [Concomitant]
     Dosage: 1 GRAM
     Route: 048

REACTIONS (9)
  - HYPOTENSION [None]
  - DECREASED APPETITE [None]
  - ACUTE RESPIRATORY FAILURE [None]
  - DRY SKIN [None]
  - MULTIPLE MYELOMA [None]
  - PANCYTOPENIA [None]
  - OESOPHAGITIS [None]
  - RASH [None]
  - RENAL FAILURE CHRONIC [None]
